FAERS Safety Report 15469812 (Version 6)
Quarter: 2022Q1

REPORT INFORMATION
  Report Type: Spontaneous
  Country: ES (occurrence: ES)
  Receive Date: 20181005
  Receipt Date: 20220127
  Transmission Date: 20220423
  Serious: Yes (Death, Other)
  Sender: FDA-Public Use
  Company Number: PHHY2018ES112169

PATIENT
  Age: 60 Year
  Sex: Male
  Weight: 90 kg

DRUGS (8)
  1. MONTELUKAST SODIUM [Suspect]
     Active Substance: MONTELUKAST SODIUM
     Indication: Immune tolerance induction
     Dosage: 10 MG, UNKNOWN
     Route: 065
  2. MONTELUKAST SODIUM [Suspect]
     Active Substance: MONTELUKAST SODIUM
     Indication: Premedication
  3. TEMOZOLOMIDE [Suspect]
     Active Substance: TEMOZOLOMIDE
     Indication: Glioblastoma multiforme
     Dosage: 75 MG ,(5 DAYS EACH 28 DAY CYCLE - DURING THE FIRST CYCLE IN MAY 2018
     Route: 048
     Dates: end: 201805
  4. TEMOZOLOMIDE [Suspect]
     Active Substance: TEMOZOLOMIDE
     Dosage: 150 MG, DAY BY 5 DAYS EACH 28 DAY(SINCE 2 CYCLE)
     Route: 048
  5. ASPIRIN [Suspect]
     Active Substance: ASPIRIN
     Indication: Immune tolerance induction
     Dosage: 300 MG, UNKNOWN
     Route: 065
  6. ASPIRIN [Suspect]
     Active Substance: ASPIRIN
     Indication: Premedication
  7. TEMODAL [Suspect]
     Active Substance: TEMOZOLOMIDE
     Indication: Product used for unknown indication
     Dosage: 75 MG, CYCLICAL, BY 5 DAYS EACH 28 DAY (1 CYCLE)
     Route: 048
     Dates: start: 201705, end: 201705
  8. TEMODAL [Suspect]
     Active Substance: TEMOZOLOMIDE
     Dosage: UNK
     Route: 048
     Dates: start: 201811

REACTIONS (11)
  - Glioblastoma multiforme [Fatal]
  - Tremor [Fatal]
  - Nausea [Fatal]
  - Anaphylactic reaction [Fatal]
  - Vomiting [Fatal]
  - Urticaria [Fatal]
  - Pruritus [Recovered/Resolved]
  - Erythema [Recovered/Resolved]
  - Chills [Recovered/Resolved]
  - Disease progression [Unknown]
  - Product use in unapproved indication [Unknown]

NARRATIVE: CASE EVENT DATE: 20170501
